FAERS Safety Report 6572498-4 (Version None)
Quarter: 2010Q1

REPORT INFORMATION
  Report Type: 
  Country: None (occurrence: None)
  Receive Date: 20100205
  Receipt Date: 20100125
  Transmission Date: 20100710
  Serious: Yes (Hospitalization, Other)
  Sender: FDA-Public Use
  Company Number: US-PFIZER INC-2008052079

PATIENT
  Sex: Female
  Weight: 79.819 kg

DRUGS (21)
  1. XANAX [Suspect]
     Indication: ANXIETY
     Dates: start: 19730101
  2. XANAX [Suspect]
     Indication: CONVULSION
  3. XANAX [Suspect]
     Indication: FEELING OF RELAXATION
  4. NEURONTIN [Suspect]
     Indication: CONVULSION
     Dates: start: 19990101
  5. NEURONTIN [Suspect]
     Dosage: FREQUENCY: 3X/DAY,
  6. DETROL LA [Suspect]
     Indication: INCONTINENCE
     Dosage: 4 MG, 1X/DAY
     Dates: start: 20090601
  7. DILANTIN [Suspect]
     Indication: NERVE BLOCK
     Dates: end: 19990101
  8. DILANTIN [Suspect]
     Indication: GRAND MAL CONVULSION
  9. CHANTIX [Suspect]
  10. MUCINEX [Concomitant]
  11. VITAMIN E [Concomitant]
  12. NAPROXEN [Concomitant]
  13. POTASSIUM CHLORIDE [Concomitant]
  14. VITAMIN B-12 [Concomitant]
     Route: 058
  15. TORSEMIDE [Concomitant]
  16. ESTROPIPATE [Concomitant]
  17. LORTAB [Concomitant]
     Indication: TEMPOROMANDIBULAR JOINT SYNDROME
  18. OXYCONTIN [Concomitant]
  19. OXYGEN [Concomitant]
  20. RELPAX [Concomitant]
  21. SPIRIVA [Concomitant]
     Dosage: UNK

REACTIONS (13)
  - ARTERIAL OCCLUSIVE DISEASE [None]
  - ARTHRITIS [None]
  - BLOOD TRIGLYCERIDES INCREASED [None]
  - CHRONIC OBSTRUCTIVE PULMONARY DISEASE [None]
  - GALLBLADDER OPERATION [None]
  - HIGH DENSITY LIPOPROTEIN DECREASED [None]
  - HYPOTENSION [None]
  - INJURY [None]
  - INTERVERTEBRAL DISC PROTRUSION [None]
  - LOW DENSITY LIPOPROTEIN INCREASED [None]
  - PNEUMONIA [None]
  - RIB FRACTURE [None]
  - TEMPOROMANDIBULAR JOINT SURGERY [None]
